FAERS Safety Report 17655712 (Version 1)
Quarter: 2020Q2

REPORT INFORMATION
  Report Type: Report from Study
  Country: CA (occurrence: CA)
  Receive Date: 20200410
  Receipt Date: 20200410
  Transmission Date: 20200713
  Serious: Yes (Other)
  Sender: FDA-Public Use
  Company Number: CA-JNJFOC-20200133061

PATIENT
  Age: 17 Year
  Sex: Female

DRUGS (1)
  1. REMICADE [Suspect]
     Active Substance: INFLIXIMAB
     Indication: JUVENILE IDIOPATHIC ARTHRITIS
     Route: 042
     Dates: start: 20191017

REACTIONS (11)
  - Back injury [Unknown]
  - Muscle spasms [Unknown]
  - Hypersensitivity [Recovering/Resolving]
  - Nausea [Not Recovered/Not Resolved]
  - Influenza [Recovered/Resolved]
  - Infection [Unknown]
  - Sports injury [Unknown]
  - Headache [Not Recovered/Not Resolved]
  - Breast mass [Unknown]
  - Juvenile idiopathic arthritis [Recovered/Resolved]
  - Vomiting [Unknown]

NARRATIVE: CASE EVENT DATE: 20200128
